FAERS Safety Report 9808199 (Version 1)
Quarter: 2014Q1

REPORT INFORMATION
  Report Type: Spontaneous
  Country: US (occurrence: US)
  Receive Date: 20140110
  Receipt Date: 20140110
  Transmission Date: 20141002
  Serious: Yes (Hospitalization)
  Sender: FDA-Public Use
  Company Number: US-INCYTE CORPORATION-2014IN000022

PATIENT
  Age: 84 Year
  Sex: Male

DRUGS (12)
  1. JAKAFI [Suspect]
     Indication: MYELODYSPLASTIC SYNDROME
     Dosage: 10 MG, BID
     Route: 048
     Dates: start: 201305
  2. COLACE [Concomitant]
  3. FOLIC ACID [Concomitant]
  4. PRED FORT [Concomitant]
  5. ZOCOR [Concomitant]
  6. NEXIUM                             /01479302/ [Concomitant]
  7. LEXAPRO [Concomitant]
  8. AMBIEN [Concomitant]
  9. HYDROCODONE/PARACETAMOL [Concomitant]
  10. TUSSIONEX PENNKINETIC [Concomitant]
  11. CYMBALTA [Concomitant]
  12. COMBIVENT [Concomitant]

REACTIONS (1)
  - Hospitalisation [Unknown]
